FAERS Safety Report 9868484 (Version 1)
Quarter: 2014Q1

REPORT INFORMATION
  Report Type: Spontaneous
  Country: JP (occurrence: JP)
  Receive Date: 20140204
  Receipt Date: 20140204
  Transmission Date: 20141002
  Serious: Yes (Hospitalization)
  Sender: FDA-Public Use
  Company Number: JP-PFIZER INC-2014031336

PATIENT
  Age: 85 Year
  Sex: Female

DRUGS (2)
  1. LYRICA [Suspect]
     Indication: SPINAL COLUMN STENOSIS
     Dosage: 25 MG, UNK
     Route: 048
  2. LYRICA [Suspect]
     Indication: BACK PAIN

REACTIONS (2)
  - VIIth nerve paralysis [Recovered/Resolved]
  - Treatment noncompliance [Unknown]
